FAERS Safety Report 16100905 (Version 1)
Quarter: 2019Q1

REPORT INFORMATION
  Report Type: Spontaneous
  Country: NL (occurrence: NL)
  Receive Date: 20190321
  Receipt Date: 20190321
  Transmission Date: 20190418
  Serious: Yes (Hospitalization)
  Sender: FDA-Public Use
  Company Number: NL-MYLANLABS-2019M1025483

PATIENT
  Age: 29 Year
  Sex: Female

DRUGS (1)
  1. INDOMETACIN [Suspect]
     Active Substance: INDOMETHACIN
     Indication: CHRONIC PAROXYSMAL HEMICRANIA
     Dosage: 50 MILLIGRAM, QD(1 X 50 MG)
     Route: 048
     Dates: start: 20170701, end: 20180709

REACTIONS (10)
  - Musculoskeletal stiffness [Recovered/Resolved]
  - Ataxia [Recovered/Resolved]
  - Urticaria [Recovered/Resolved]
  - Petechiae [Recovered/Resolved]
  - Off label use [Unknown]
  - Asthenia [Recovered/Resolved]
  - Dysarthria [Recovered/Resolved]
  - Tremor [Recovered/Resolved]
  - Purpura [Recovered/Resolved]
  - Pyrexia [Recovered/Resolved]

NARRATIVE: CASE EVENT DATE: 20170705
